FAERS Safety Report 6810892-4 (Version None)
Quarter: 2010Q2

REPORT INFORMATION
  Report Type: 
  Country: None (occurrence: None)
  Receive Date: 20100630
  Receipt Date: 20080818
  Transmission Date: 20101027
  Serious: No
  Sender: FDA-Public Use
  Company Number: US-PFIZER INC-2008066685

PATIENT
  Sex: Female
  Weight: 65 kg

DRUGS (2)
  1. ESTRING [Suspect]
     Indication: VULVOVAGINAL DRYNESS
     Dates: start: 20080806, end: 20080808
  2. LIPITOR [Concomitant]

REACTIONS (1)
  - NAUSEA [None]
